FAERS Safety Report 6360765-9 (Version None)
Quarter: 2009Q3

REPORT INFORMATION
  Report Type: 
  Country: None (occurrence: None)
  Receive Date: 20090918
  Receipt Date: 20090907
  Transmission Date: 20100115
  Serious: Yes (Other)
  Sender: FDA-Public Use
  Company Number: GB-JNJFOC-20090902840

PATIENT
  Sex: Female
  Weight: 52 kg

DRUGS (7)
  1. REMICADE [Suspect]
     Route: 042
     Dates: start: 20030519, end: 20040515
  2. REMICADE [Suspect]
     Indication: RHEUMATOID ARTHRITIS
     Route: 042
     Dates: start: 20030519, end: 20040515
  3. PREDNISOLONE [Concomitant]
  4. DIDRONEL [Concomitant]
  5. LANSOPRAZOLE [Concomitant]
  6. REMEDEINE [Concomitant]
  7. SALAZOPYRIN [Concomitant]

REACTIONS (1)
  - SQUAMOUS CELL CARCINOMA [None]
